FAERS Safety Report 10553221 (Version 8)
Quarter: 2015Q2

REPORT INFORMATION
  Report Type: Report from Study
  Country: CA (occurrence: CA)
  Receive Date: 20141030
  Receipt Date: 20150407
  Transmission Date: 20150821
  Serious: Yes (Other)
  Sender: FDA-Public Use
  Company Number: CA-ROCHE-1472080

PATIENT
  Age: 63 Year
  Sex: Female

DRUGS (4)
  1. ACTEMRA [Suspect]
     Active Substance: TOCILIZUMAB
     Indication: RHEUMATOID ARTHRITIS
     Dosage: EVERY OTHER WEEK
     Route: 058
     Dates: start: 20140923, end: 20141107
  2. TRAMADOL [Concomitant]
     Active Substance: TRAMADOL
  3. CELEBREX [Concomitant]
     Active Substance: CELECOXIB
  4. ACTEMRA [Suspect]
     Active Substance: TOCILIZUMAB
     Indication: RHEUMATOID ARTHRITIS
     Route: 042
     Dates: start: 20141127, end: 20150105

REACTIONS (13)
  - Hypotonia [Unknown]
  - Formication [Recovered/Resolved]
  - Fatigue [Unknown]
  - Blood pressure increased [Unknown]
  - Weight decreased [Unknown]
  - Muscle swelling [Not Recovered/Not Resolved]
  - Dysphagia [Unknown]
  - Eyelid ptosis [Unknown]
  - Slow speech [Unknown]
  - Chest discomfort [Unknown]
  - Joint swelling [Not Recovered/Not Resolved]
  - Pruritus [Recovered/Resolved]
  - Sensory disturbance [Not Recovered/Not Resolved]

NARRATIVE: CASE EVENT DATE: 20141007
